FAERS Safety Report 20185571 (Version 1)
Quarter: 2021Q4

REPORT INFORMATION
  Report Type: Spontaneous
  Country: US (occurrence: US)
  Receive Date: 20211215
  Receipt Date: 20211215
  Transmission Date: 20220303
  Serious: No
  Sender: FDA-Public Use
  Company Number: US-SPECGX-T202102332

PATIENT
  Age: 51 Year
  Sex: Female
  Weight: 68 kg

DRUGS (3)
  1. FENTANYL TRANSDERMAL SYSTEM [Suspect]
     Active Substance: FENTANYL
     Indication: Pain
     Dosage: 37.5 MCG/HR, EVERY 72 HOURS
     Route: 062
     Dates: start: 2021
  2. FENTANYL TRANSDERMAL SYSTEM [Suspect]
     Active Substance: FENTANYL
     Dosage: 37.5 MCG/HR, EVERY 72 HOURS
     Route: 062
     Dates: start: 20211008
  3. PREDNISONE [Concomitant]
     Active Substance: PREDNISONE
     Indication: Asthma
     Dosage: UNK
     Route: 065

REACTIONS (5)
  - Heart rate increased [Recovering/Resolving]
  - Hypertension [Recovering/Resolving]
  - Application site swelling [Recovering/Resolving]
  - Malaise [Recovering/Resolving]
  - Product quality issue [Recovering/Resolving]

NARRATIVE: CASE EVENT DATE: 20211011
